FAERS Safety Report 24847960 (Version 1)
Quarter: 2025Q1

REPORT INFORMATION
  Report Type: Spontaneous
  Country: GB (occurrence: GB)
  Receive Date: 20250116
  Receipt Date: 20250116
  Transmission Date: 20250408
  Serious: Yes (Other)
  Sender: AUROBINDO
  Company Number: GB-MHRA-TPP22594638C5149764YC1735817493320

PATIENT
  Age: 48 Year
  Sex: Female
  Weight: 94 kg

DRUGS (8)
  1. AMLODIPINE BESYLATE [Suspect]
     Active Substance: AMLODIPINE BESYLATE
     Indication: Ill-defined disorder
     Route: 065
     Dates: start: 20241002
  2. AMLODIPINE BESYLATE [Suspect]
     Active Substance: AMLODIPINE BESYLATE
     Dosage: 5 MILLIGRAM, ONCE A DAY
     Route: 065
     Dates: start: 20241016, end: 20250102
  3. METFORMIN [Concomitant]
     Active Substance: METFORMIN HYDROCHLORIDE
     Indication: Ill-defined disorder
     Dosage: UNK, TWO TIMES A DAY
     Route: 065
     Dates: start: 20230713
  4. RAMIPRIL [Concomitant]
     Active Substance: RAMIPRIL
     Indication: Ill-defined disorder
     Route: 065
     Dates: start: 20230713
  5. DAPAGLIFLOZIN [Concomitant]
     Active Substance: DAPAGLIFLOZIN
     Indication: Ill-defined disorder
     Dosage: 1 DOSAGE FORM, ONCE A DAY
     Route: 065
     Dates: start: 20230802
  6. LATANOPROST [Concomitant]
     Active Substance: LATANOPROST
     Indication: Ill-defined disorder
     Route: 065
     Dates: start: 20240221
  7. ATORVASTATIN [Concomitant]
     Active Substance: ATORVASTATIN
     Indication: Ill-defined disorder
     Route: 065
     Dates: start: 20250102
  8. INDAPAMIDE [Concomitant]
     Active Substance: INDAPAMIDE
     Indication: Ill-defined disorder
     Route: 065
     Dates: start: 20250102

REACTIONS (2)
  - Swelling face [Recovered/Resolved]
  - Dyspnoea [Recovered/Resolved]
